FAERS Safety Report 16607013 (Version 1)
Quarter: 2019Q3

REPORT INFORMATION
  Report Type: Spontaneous
  Country: CA (occurrence: CA)
  Receive Date: 20190722
  Receipt Date: 20190722
  Transmission Date: 20191004
  Serious: Yes (Disabling)
  Sender: FDA-Public Use
  Company Number: CA-AUROBINDO-AUR-APL-2019-040932

PATIENT

DRUGS (6)
  1. MEKINIST [Suspect]
     Active Substance: TRAMETINIB DIMETHYL SULFOXIDE
     Indication: ADJUVANT THERAPY
     Dosage: 1 MILLIGRAM, ONCE A DAY
     Route: 048
  2. TAFINLAR [Suspect]
     Active Substance: DABRAFENIB MESYLATE
     Indication: SKIN NEOPLASM EXCISION
     Dosage: 75 MILLIGRAM, TWO TIMES A DAY
     Route: 048
  3. CITALOPRAM [Suspect]
     Active Substance: CITALOPRAM HYDROBROMIDE
     Indication: DEPRESSION
     Dosage: 10 MILLIGRAM, ONCE A DAY
     Route: 048
  4. CITALOPRAM [Suspect]
     Active Substance: CITALOPRAM HYDROBROMIDE
     Dosage: 20 MILLIGRAM, ONCE A DAY
     Route: 048
  5. MEKINIST [Suspect]
     Active Substance: TRAMETINIB DIMETHYL SULFOXIDE
     Indication: SKIN NEOPLASM EXCISION
     Dosage: 1 MILLIGRAM, ONCE A DAY
     Route: 048
  6. TAFINLAR [Suspect]
     Active Substance: DABRAFENIB MESYLATE
     Indication: ADJUVANT THERAPY
     Dosage: 75 MILLIGRAM, TWO TIMES A DAY
     Route: 048

REACTIONS (4)
  - Drug interaction [Recovering/Resolving]
  - Peripheral swelling [Recovering/Resolving]
  - Erythema nodosum [Recovering/Resolving]
  - Headache [Recovering/Resolving]
